FAERS Safety Report 9034195 (Version 1)
Quarter: 2013Q1

REPORT INFORMATION
  Report Type: Spontaneous
  Country: US (occurrence: None)
  Receive Date: 20130114
  Receipt Date: 20130114
  Transmission Date: 20140127
  Serious: Yes (Other)
  Sender: FDA-Public Use
  Company Number: KAD201301-000027

PATIENT
  Age: 49 Year
  Sex: Male

DRUGS (2)
  1. RIBAVIRIN (RIBAVIRIN) [Suspect]
     Indication: CHRONIC HEPATITIS C
     Dosage: (IN DIVIDED DOSES)
  2. PEGINTERFERON ALPHA-2A(PEGINTERFERON ALFA-2A) [Suspect]
     Indication: CHRONIC HEPATITIS C

REACTIONS (9)
  - Haemolysis [None]
  - Haemoglobinuria [None]
  - Muscle spasms [None]
  - Chromaturia [None]
  - Blood bilirubin unconjugated increased [None]
  - Reticulocyte count increased [None]
  - Blood lactate dehydrogenase increased [None]
  - Haptoglobin decreased [None]
  - Haematuria [None]
